FAERS Safety Report 5220775-1 (Version None)
Quarter: 2007Q1

REPORT INFORMATION
  Report Type: 
  Country: None (occurrence: None)
  Receive Date: 20070126
  Receipt Date: 20070115
  Transmission Date: 20070707
  Serious: Yes (Other)
  Sender: FDA-Public Use
  Company Number: PHNU2007DE00547

PATIENT
  Age: 57 Year
  Sex: Female

DRUGS (2)
  1. FEMARA [Suspect]
     Indication: BREAST CANCER METASTATIC
     Dosage: 2.5 MG, QD
     Route: 048
     Dates: start: 20050301
  2. VISCUM ALBUM EXTRACT [Concomitant]
     Route: 065

REACTIONS (2)
  - CD4 LYMPHOCYTES DECREASED [None]
  - IMMUNE SYSTEM DISORDER [None]
